FAERS Safety Report 6611848-7 (Version None)
Quarter: 2010Q1

REPORT INFORMATION
  Report Type: 
  Country: None (occurrence: None)
  Receive Date: 20100225
  Receipt Date: 20100217
  Transmission Date: 20100710
  Serious: Yes (Other)
  Sender: FDA-Public Use
  Company Number: DSU-2010-00662

PATIENT
  Sex: Female

DRUGS (2)
  1. BENICAR HCT [Suspect]
     Indication: HYPERTENSION
     Dosage: UNKNOWN (QD), PER ORAL
     Route: 048
  2. VITAMINS [Concomitant]

REACTIONS (1)
  - SWOLLEN TONGUE [None]
